FAERS Safety Report 10437753 (Version 2)
Quarter: 2014Q3

REPORT INFORMATION
  Report Type: Spontaneous
  Country: US (occurrence: US)
  Receive Date: 20140908
  Receipt Date: 20140908
  Transmission Date: 20150326
  Serious: No
  Sender: FDA-Public Use
  Company Number: US-BRISTOL-MYERS SQUIBB COMPANY-19778570

PATIENT

DRUGS (3)
  1. THORAZINE [Concomitant]
     Active Substance: CHLORPROMAZINE
     Dosage: 100 MG TWICE DAILY AFTER MEAL; 800 MG AT BEDTIME
     Route: 048
  2. ABILIFY [Suspect]
     Active Substance: ARIPIPRAZOLE
     Indication: DEPRESSION
     Route: 048
     Dates: start: 20131105
  3. WELLBUTRIN XL [Concomitant]
     Active Substance: BUPROPION HYDROCHLORIDE
     Dosage: EVERY DAY BEFORE NOON
     Route: 048

REACTIONS (1)
  - Faecal incontinence [Recovered/Resolved]

NARRATIVE: CASE EVENT DATE: 20131105
